FAERS Safety Report 10642155 (Version 4)
Quarter: 2016Q2

REPORT INFORMATION
  Report Type: Report from Study
  Country: FR (occurrence: FR)
  Receive Date: 20141210
  Receipt Date: 20160608
  Transmission Date: 20160815
  Serious: Yes (Disabling, Other)
  Sender: FDA-Public Use
  Company Number: FR-LEO PHARMA-230942

PATIENT
  Age: 73 Year
  Sex: Female
  Weight: 65 kg

DRUGS (1)
  1. PICATO [Suspect]
     Active Substance: INGENOL MEBUTATE
     Indication: ACTINIC KERATOSIS
     Dosage: 1 TUBE (1 APPLICATION PER DAY)
     Route: 061
     Dates: start: 201403, end: 201404

REACTIONS (5)
  - Application site burn [Recovered/Resolved]
  - Application site scar [Recovered/Resolved]
  - Application site vesicles [Recovered/Resolved]
  - Application site pain [Recovered/Resolved]
  - Application site discharge [Recovered/Resolved]

NARRATIVE: CASE EVENT DATE: 201404
